FAERS Safety Report 5057073-5 (Version None)
Quarter: 2006Q2

REPORT INFORMATION
  Report Type: 
  Country: None (occurrence: None)
  Receive Date: 20060622
  Receipt Date: 20060417
  Transmission Date: 20061013
  Serious: Yes (Death)
  Sender: FDA-Public Use
  Company Number: US-JNJFOC-20060404389

PATIENT
  Age: 49 Year
  Sex: Female
  Weight: 113.3993 kg

DRUGS (17)
  1. DURAGESIC-100 [Suspect]
     Indication: PAIN
     Dosage: SEE IMAGE
     Route: 062
     Dates: start: 20020618
  2. DURAGESIC-100 [Suspect]
     Indication: PAIN
     Dosage: SEE IMAGE
     Route: 062
     Dates: start: 20021023
  3. DURAGESIC-100 [Suspect]
     Indication: PAIN
     Dosage: SEE IMAGE
     Route: 062
     Dates: start: 20030212
  4. DURAGESIC-100 [Suspect]
     Indication: PAIN
     Dosage: SEE IMAGE
     Route: 062
     Dates: start: 20040210
  5. MORPHINE SULFATE [Suspect]
     Indication: PAIN
     Dosage: SEE IMAGE
     Route: 048
     Dates: start: 20040209
  6. WELLBUTRIN (BUPROPION HYDROCHLORIDE) TABLET [Concomitant]
  7. GLUCOPHAGE (METFORMIN HYDROCHLORIDE) TABLET [Concomitant]
  8. NEURONTIN [Concomitant]
  9. URSO (URSODEOXYCHOLIC ACID) TABLET [Concomitant]
  10. RISPERDAL [Concomitant]
  11. TRAZODONE HCL [Concomitant]
  12. METOCLOPRAMIDE (METOCLOPRAMIDE) TABLET [Concomitant]
  13. TOPAMAX [Concomitant]
  14. PRIMIDONE (PRIMIDONE) TABLET [Concomitant]
  15. GLYBURIDE [Concomitant]
  16. VIOXX [Concomitant]
  17. NEXIUM [Concomitant]

REACTIONS (1)
  - DRUG TOXICITY [None]
